FAERS Safety Report 4524205-4 (Version None)
Quarter: 2004Q4

REPORT INFORMATION
  Report Type: 
  Country: None (occurrence: None)
  Receive Date: 20041209
  Receipt Date: 20041125
  Transmission Date: 20050328
  Serious: Yes (Hospitalization)
  Sender: FDA-Public Use
  Company Number: 2004AC00381

PATIENT
  Age: 70 Year
  Sex: Male

DRUGS (15)
  1. CRESTOR [Suspect]
     Dates: start: 20040901, end: 20040915
  2. EZETROL [Suspect]
  3. CORDARONE [Concomitant]
  4. CORUNO [Concomitant]
  5. KREDEX [Concomitant]
  6. PLAVIX [Concomitant]
  7. BURINEX [Concomitant]
  8. SINGULAIR 10 [Concomitant]
  9. LESCOL [Concomitant]
  10. ATACAND 8 [Concomitant]
  11. PIRACETAM 1200 [Concomitant]
  12. ATROVENT AEROSOL [Concomitant]
  13. FUROSEMID-RADIOPHARM [Concomitant]
  14. FORADIL [Concomitant]
  15. MIFLONIDE [Concomitant]

REACTIONS (14)
  - AORTIC ATHEROSCLEROSIS [None]
  - BETA HAEMOLYTIC STREPTOCOCCAL INFECTION [None]
  - CHRONIC OBSTRUCTIVE AIRWAYS DISEASE [None]
  - CONDITION AGGRAVATED [None]
  - ESCHERICHIA INFECTION [None]
  - HEPATIC STEATOSIS [None]
  - HEPATOMEGALY [None]
  - LEUKOCYTOCLASTIC VASCULITIS [None]
  - OBESITY [None]
  - PSEUDOMONAS INFECTION [None]
  - PULMONARY HYPERTENSION [None]
  - RIGHT VENTRICULAR FAILURE [None]
  - STAPHYLOCOCCAL INFECTION [None]
  - VASCULITIS NECROTISING [None]
